FAERS Safety Report 7910621-7 (Version None)
Quarter: 2011Q4

REPORT INFORMATION
  Report Type: 
  Country: None (occurrence: None)
  Receive Date: 20111111
  Receipt Date: 20111104
  Transmission Date: 20120403
  Serious: Yes (Hospitalization, Other)
  Sender: FDA-Public Use
  Company Number: US-US-EMD SERONO, INC.-7023973

PATIENT
  Sex: Female
  Weight: 69 kg

DRUGS (6)
  1. REBIF [Suspect]
     Route: 058
     Dates: start: 20060101
  2. ADDERALL 5 [Concomitant]
     Indication: DEPRESSION
  3. CYMBALTA [Concomitant]
     Indication: DEPRESSION
     Dates: start: 20100101
  4. ZOLOFT [Concomitant]
     Indication: DEPRESSION
  5. REBIF [Suspect]
     Indication: MULTIPLE SCLEROSIS
     Route: 058
     Dates: start: 20020101, end: 20050501
  6. CYMBALTA [Concomitant]
     Indication: FIBROMYALGIA
     Dates: end: 20040101

REACTIONS (20)
  - INTERVERTEBRAL DISC DEGENERATION [None]
  - RHEUMATOID ARTHRITIS [None]
  - UTERINE POLYP [None]
  - INJECTION SITE SCAB [None]
  - INJECTION SITE PAIN [None]
  - FEELING ABNORMAL [None]
  - SLEEP DISORDER [None]
  - MULTIPLE SCLEROSIS RELAPSE [None]
  - INJECTION SITE CYST [None]
  - INJECTION SITE DISCOLOURATION [None]
  - FIBROMYALGIA [None]
  - INJECTION SITE DISCHARGE [None]
  - INFLUENZA LIKE ILLNESS [None]
  - SCAR [None]
  - BACK PAIN [None]
  - EATING DISORDER [None]
  - LOCALISED INFECTION [None]
  - INJECTION SITE MASS [None]
  - BREAST CANCER [None]
  - INJECTION SITE ULCER [None]
